FAERS Safety Report 6532551-8 (Version None)
Quarter: 2010Q1

REPORT INFORMATION
  Report Type: 
  Country: None (occurrence: None)
  Receive Date: 20100111
  Receipt Date: 20100106
  Transmission Date: 20100710
  Serious: Yes (Life-Threatening, Congenital Anomaly, Other)
  Sender: FDA-Public Use
  Company Number: DE-ASTRAZENECA-2009SE28136

PATIENT
  Sex: Female
  Weight: 1.7 kg

DRUGS (1)
  1. CANDESARTAN CILEXETIL [Suspect]
     Route: 064

REACTIONS (11)
  - CEREBRAL CALCIFICATION [None]
  - FOETAL GROWTH RETARDATION [None]
  - HYPERBILIRUBINAEMIA [None]
  - HYPERTENSION [None]
  - HYPOGLYCAEMIA [None]
  - INGUINAL HERNIA [None]
  - MICROCEPHALY [None]
  - POOR SUCKING REFLEX [None]
  - PREMATURE BABY [None]
  - RENAL FAILURE [None]
  - SKULL MALFORMATION [None]
